FAERS Safety Report 23032313 (Version 1)
Quarter: 2023Q4

REPORT INFORMATION
  Report Type: Spontaneous
  Country: US (occurrence: None)
  Receive Date: 20231004
  Receipt Date: 20231004
  Transmission Date: 20240110
  Serious: Yes (Other)
  Sender: FDA-Public Use
  Company Number: None

PATIENT
  Age: 62 Year
  Sex: Female
  Weight: 54 kg

DRUGS (1)
  1. MOLNUPIRAVIR [Suspect]
     Active Substance: MOLNUPIRAVIR
     Indication: COVID-19
     Dates: start: 20230917, end: 20230921

REACTIONS (6)
  - Swelling of eyelid [None]
  - Diplopia [None]
  - Urticaria [None]
  - Condition aggravated [None]
  - Leukotriene increased [None]
  - Neuropathy peripheral [None]

NARRATIVE: CASE EVENT DATE: 20230918
